FAERS Safety Report 16934128 (Version 2)
Quarter: 2019Q4

REPORT INFORMATION
  Report Type: Spontaneous
  Country: IT (occurrence: IT)
  Receive Date: 20191018
  Receipt Date: 20191127
  Transmission Date: 20200122
  Serious: Yes (Other)
  Sender: FDA-Public Use
  Company Number: IT-ACCORD-157851

PATIENT
  Age: 73 Year
  Sex: Male

DRUGS (8)
  1. ENOXAPARIN [Suspect]
     Active Substance: ENOXAPARIN
     Indication: THROMBOSIS
     Dosage: 0.4 ML/4000 IU BID (1 MG/KG TWICE DAILY) FOR 6, 2 MG/KG DAILY
     Route: 065
  2. CLOPIDOGREL [Suspect]
     Active Substance: CLOPIDOGREL BISULFATE
     Indication: THROMBOSIS
     Dosage: UNK
     Route: 065
     Dates: start: 2001
  3. KETOROLAC [Suspect]
     Active Substance: KETOROLAC TROMETHAMINE
     Indication: ABDOMINAL PAIN
     Dosage: 3 DOSES
     Route: 065
  4. NADROPARIN [Suspect]
     Active Substance: NADROPARIN
     Indication: ANTICOAGULANT THERAPY
  5. ENOXAPARIN [Suspect]
     Active Substance: ENOXAPARIN
     Indication: ANTICOAGULANT THERAPY
     Dosage: 0.4 ML/4000 IU BID (1 MG/KG TWICE DAILY) FOR 6
     Route: 065
  6. NADROPARIN [Suspect]
     Active Substance: NADROPARIN
     Indication: THROMBOSIS
     Dosage: 0.6 ML, BID, 1 INJECTION EVERY 12 HOURS
     Route: 065
     Dates: start: 20180110, end: 20180220
  7. ESOMEPRAZOLE/ESOMEPRAZOLE MAGNESIUM/ESOMEPRAZOLE SODIUM [Suspect]
     Active Substance: ESOMEPRAZOLE
     Indication: THROMBOSIS
     Dosage: UNK
     Route: 065
  8. SIMVASTATIN. [Suspect]
     Active Substance: SIMVASTATIN
     Indication: THROMBOSIS
     Dosage: UNK
     Route: 065
     Dates: start: 2001

REACTIONS (1)
  - Drug-induced liver injury [Recovered/Resolved]
